FAERS Safety Report 4650396-0 (Version None)
Quarter: 2005Q2

REPORT INFORMATION
  Report Type: 
  Country: None (occurrence: None)
  Receive Date: 20050429
  Receipt Date: 20050223
  Transmission Date: 20051028
  Serious: Yes (Death)
  Sender: FDA-Public Use
  Company Number: 2005-UK-00308UK

PATIENT
  Sex: Male

DRUGS (4)
  1. ATROVENT [Suspect]
     Dosage: 20MCG/PUFF, IH
     Route: 055
  2. SALBUTAMOL (SALBUTAMOL) (NR) [Suspect]
     Dosage: 3-4PUFFS EVERY 2 HOURS (100 MCG, EVERY 2 HOURS)
  3. THEOPHYLLINE [Suspect]
     Dosage: ONE TO BE TAKEN TWICE DAILY (300 MG, TWICE DAILY)
  4. BECLOMETHASONE DIPROPIONATE [Suspect]
     Dosage: TWO PUFFS TWICE A DAY (250 MCG, TWICE DAILY)

REACTIONS (1)
  - LUNG INFECTION PSEUDOMONAL [None]
